FAERS Safety Report 9287673 (Version 2)
Quarter: 2013Q3

REPORT INFORMATION
  Report Type: Report from Study
  Country: BR (occurrence: BR)
  Receive Date: 20130514
  Receipt Date: 20130822
  Transmission Date: 20140515
  Serious: Yes (Other)
  Sender: FDA-Public Use
  Company Number: PHHY2013BR046886

PATIENT
  Sex: Female
  Weight: 48 kg

DRUGS (3)
  1. RITALINA [Suspect]
     Indication: ATTENTION DEFICIT/HYPERACTIVITY DISORDER
     Dosage: 1 DF, (10 MG) AT MORNING
     Route: 048
  2. RITALINA [Suspect]
     Dosage: UNK UKN, UNK
  3. AMITRIPTYLINE [Concomitant]
     Dosage: UNK UKN, UNK
     Dates: start: 2000

REACTIONS (7)
  - Hepatitis [Not Recovered/Not Resolved]
  - Memory impairment [Recovered/Resolved]
  - Asthenia [Unknown]
  - Speech disorder [Recovered/Resolved]
  - Confusional state [Recovered/Resolved]
  - Psychomotor hyperactivity [Unknown]
  - Drug ineffective [Unknown]
